FAERS Safety Report 13251122 (Version 1)
Quarter: 2017Q1

REPORT INFORMATION
  Report Type: Spontaneous
  Country: JP (occurrence: JP)
  Receive Date: 20170220
  Receipt Date: 20170220
  Transmission Date: 20170428
  Serious: Yes (Hospitalization, Other)
  Sender: FDA-Public Use
  Company Number: JP-CIPLA LTD.-2017JP01953

PATIENT

DRUGS (27)
  1. SILDENAFIL. [Suspect]
     Active Substance: SILDENAFIL
     Dosage: 40 MG/ DAY (POST DEC-2011)
     Route: 065
  2. TORASEMIDE [Suspect]
     Active Substance: TORSEMIDE
     Dosage: 4 MG/DAY (JUN-2012)
     Route: 065
  3. WARFARIN [Suspect]
     Active Substance: WARFARIN
     Dosage: 3.5 MG/ DAY (POST BAP, JUN-2011)
     Route: 065
  4. BOSENTAN. [Suspect]
     Active Substance: BOSENTAN
     Indication: PULMONARY HYPERTENSION
     Dosage: 187.5 MG/ DAY (PRE JUN-2011)
     Route: 065
  5. SILDENAFIL. [Suspect]
     Active Substance: SILDENAFIL
     Dosage: 40 MG/ DAY (JUN-2012)
     Route: 065
  6. TORASEMIDE [Suspect]
     Active Substance: TORSEMIDE
     Dosage: 4 MG/DAY (PRE DEC-2011)
     Route: 065
  7. BETAINE [Concomitant]
     Active Substance: BETAINE
     Indication: CARDIAC MURMUR
     Dosage: UNK
     Route: 065
  8. BERAPROST [Suspect]
     Active Substance: BERAPROST
     Indication: PULMONARY HYPERTENSION
     Dosage: 360 MG/DAY (PRE JUN-2011)
     Route: 065
  9. WARFARIN [Suspect]
     Active Substance: WARFARIN
     Indication: ANTICOAGULANT THERAPY
     Dosage: UNK
     Route: 065
  10. WARFARIN [Suspect]
     Active Substance: WARFARIN
     Dosage: 5 MG/ DAY (POST BAP, DEC-2011)
     Route: 065
  11. WARFARIN [Suspect]
     Active Substance: WARFARIN
     Dosage: 3.25 MG/ DAY (JUN-2012)
     Route: 065
  12. SILDENAFIL. [Suspect]
     Active Substance: SILDENAFIL
     Dosage: 40 MG/ DAY (PRE DEC-2011)
     Route: 065
  13. SILDENAFIL. [Suspect]
     Active Substance: SILDENAFIL
     Dosage: 40 MG/ DAY (NOV-2012)
     Route: 065
  14. SPIRONOLACTONE. [Suspect]
     Active Substance: SPIRONOLACTONE
     Indication: PULMONARY HYPERTENSION
     Dosage: 25 MG/DAY (POST JUN-2011)
     Route: 065
  15. WARFARIN [Suspect]
     Active Substance: WARFARIN
     Dosage: 5 MG/ DAY (PRE BAP, DEC-2011)
     Route: 065
  16. SILDENAFIL. [Suspect]
     Active Substance: SILDENAFIL
     Indication: PULMONARY HYPERTENSION
     Dosage: 40 MG/ DAY (PRE JUN-2011)
     Route: 065
  17. SPIRONOLACTONE. [Suspect]
     Active Substance: SPIRONOLACTONE
     Dosage: 25 MG/DAY (JUN-2012)
     Route: 065
  18. TORASEMIDE [Suspect]
     Active Substance: TORSEMIDE
     Indication: PULMONARY HYPERTENSION
     Dosage: 4 MG/DAY (POST JUN-2011)
     Route: 065
  19. SILDENAFIL. [Suspect]
     Active Substance: SILDENAFIL
     Dosage: 40 MG/ DAY (POST JUN-2011)
     Route: 065
  20. SPIRONOLACTONE. [Suspect]
     Active Substance: SPIRONOLACTONE
     Dosage: 25 MG/DAY (PRE DEC-2011)
     Route: 065
  21. SPIRONOLACTONE. [Suspect]
     Active Substance: SPIRONOLACTONE
     Dosage: 25 MG/DAY (NOV-2012)
     Route: 065
  22. TORASEMIDE [Suspect]
     Active Substance: TORSEMIDE
     Dosage: 4 MG/DAY (JUN-2012)
     Route: 065
  23. WARFARIN [Suspect]
     Active Substance: WARFARIN
     Dosage: 3.5 MG/ DAY (PRE BAP, JUN-2011)
     Route: 065
  24. WARFARIN [Suspect]
     Active Substance: WARFARIN
     Dosage: 3.25 MG/ DAY (NOV-2012)
     Route: 065
  25. BOSENTAN. [Suspect]
     Active Substance: BOSENTAN
     Dosage: 187.5 MG/ DAY (POST JUN-2011)
     Route: 065
  26. SPIRONOLACTONE. [Suspect]
     Active Substance: SPIRONOLACTONE
     Dosage: 25 MG/DAY (POST DEC-2011)
     Route: 065
  27. TORASEMIDE [Suspect]
     Active Substance: TORSEMIDE
     Dosage: 4 MG/DAY (POST DEC-2011)
     Route: 065

REACTIONS (3)
  - Disease progression [Unknown]
  - Right ventricular hypertrophy [Unknown]
  - Treatment failure [Unknown]
